FAERS Safety Report 23872754 (Version 1)
Quarter: 2024Q2

REPORT INFORMATION
  Report Type: Spontaneous
  Country: US (occurrence: US)
  Receive Date: 20240520
  Receipt Date: 20240520
  Transmission Date: 20240716
  Serious: Yes (Hospitalization, Other)
  Sender: FDA-Public Use
  Company Number: US-ASTELLAS-2024EU004691

PATIENT
  Age: 73 Year
  Sex: Male

DRUGS (3)
  1. TACROLIMUS [Interacting]
     Active Substance: TACROLIMUS
     Indication: Renal transplant
     Dosage: UNK UNK, UNKNOWN FREQ.
     Route: 065
  2. NIRMATRELVIR\RITONAVIR [Interacting]
     Active Substance: NIRMATRELVIR\RITONAVIR
     Indication: COVID-19
     Dosage: UNK UNK, UNKNOWN FREQ.
     Route: 065
  3. FOSPHENYTOIN [Interacting]
     Active Substance: FOSPHENYTOIN
     Indication: Toxicity to various agents
     Dosage: 100 MG, EVERY 8 HOURS (8 DOSES)
     Route: 042

REACTIONS (8)
  - Toxicity to various agents [Recovered/Resolved]
  - Distributive shock [Unknown]
  - Metabolic encephalopathy [Unknown]
  - Acute kidney injury [Unknown]
  - Sepsis [Unknown]
  - COVID-19 [Unknown]
  - Drug interaction [Unknown]
  - Drug interaction [Unknown]
